FAERS Safety Report 25090243 (Version 1)
Quarter: 2025Q1

REPORT INFORMATION
  Report Type: Spontaneous
  Country: FR (occurrence: FR)
  Receive Date: 20250318
  Receipt Date: 20250318
  Transmission Date: 20250409
  Serious: Yes (Death, Life-Threatening)
  Sender: MYLAN
  Company Number: FR-MEDA-M-EU-2014080285

PATIENT
  Age: 69 Year
  Sex: Female
  Weight: 84 kg

DRUGS (10)
  1. EPINEPHRINE [Suspect]
     Active Substance: EPINEPHRINE
     Indication: Resuscitation
  2. LIDOCAINE HYDROCHLORIDE [Suspect]
     Active Substance: LIDOCAINE HYDROCHLORIDE
     Indication: Scoliosis surgery
     Dosage: 1.1 MG/KG/H DURING 3 HOURS AND SUBSEQUENT 1.2 MG/KG/H FOR 2 HOURS
  3. LIDOCAINE HYDROCHLORIDE [Suspect]
     Active Substance: LIDOCAINE HYDROCHLORIDE
     Indication: Induction of anaesthesia
  4. AMIODARONE [Suspect]
     Active Substance: AMIODARONE
     Indication: Resuscitation
  5. HYDROXYZINE [Concomitant]
     Active Substance: HYDROXYZINE HYDROCHLORIDE
     Indication: Sleep disorder therapy
     Dosage: 12.5 MILLIGRAM, QD
  6. HYDROXYZINE [Concomitant]
     Active Substance: HYDROXYZINE HYDROCHLORIDE
     Indication: Sleep disorder
  7. PROPOFOL [Concomitant]
     Active Substance: PROPOFOL
     Indication: General anaesthesia
  8. SUFENTANIL [Concomitant]
     Active Substance: SUFENTANIL
     Indication: General anaesthesia
  9. ATRACURIUM [Concomitant]
     Active Substance: ATRACURIUM
     Indication: General anaesthesia
  10. BISOPROLOL [Concomitant]
     Active Substance: BISOPROLOL
     Indication: Hypertension
     Dosage: 10 MILLIGRAM, QD

REACTIONS (3)
  - Cardiac arrest [Fatal]
  - Scoliosis [Fatal]
  - Drug ineffective [Unknown]
